FAERS Safety Report 20629389 (Version 1)
Quarter: 2022Q1

REPORT INFORMATION
  Report Type: Spontaneous
  Country: GB (occurrence: GB)
  Receive Date: 20220323
  Receipt Date: 20220323
  Transmission Date: 20220424
  Serious: Yes (Hospitalization)
  Sender: FDA-Public Use
  Company Number: GB-ELI_LILLY_AND_COMPANY-GB202203006637

PATIENT
  Age: 74 Year
  Sex: Female
  Weight: 80 kg

DRUGS (14)
  1. TRULICITY [Suspect]
     Active Substance: DULAGLUTIDE
     Indication: Diabetes mellitus
     Dosage: 1.5 MG, WEEKLY (1/W)
     Route: 058
     Dates: start: 20220217, end: 20220309
  2. AMOXICILLIN [Concomitant]
     Active Substance: AMOXICILLIN
     Indication: Cystitis
     Dosage: ONE TO BE TAKEN THREE TIMES A DAY
     Route: 065
     Dates: start: 20220128, end: 20220226
  3. BETAMETHASONE [Concomitant]
     Active Substance: BETAMETHASONE
     Indication: Neuropathy peripheral
     Dosage: APPLY THINLY ONCE A DAY UNTIL THE REDNESS HAS GONE
     Route: 065
     Dates: start: 20220212
  4. COMIRNATY [Concomitant]
     Active Substance: TOZINAMERAN
     Dosage: 0.3 ML, UNKNOWN
     Route: 030
     Dates: start: 20220124
  5. DIHYDROCODEINE [Concomitant]
     Active Substance: DIHYDROCODEINE
     Dosage: ONE TO BE TAKEN UP TO FOUR TIMES A DAY WHEN REQUIRED
     Route: 065
     Dates: start: 20211214, end: 20220123
  6. DIHYDROCODEINE [Concomitant]
     Active Substance: DIHYDROCODEINE
     Dosage: ONE TO BE TAKEN UP TO FOUR TIMES A DAY WHEN REQUIRED
     Route: 065
     Dates: start: 20220308
  7. MINERAL OIL\PETROLATUM\WAX, EMULSIFYING [Concomitant]
     Active Substance: MINERAL OIL\PETROLATUM\WAX, EMULSIFYING
     Indication: Neuropathy peripheral
     Dosage: APPLY AS NEEDED TO MOISTURIZE, AT LEAST TWICE A DAY
     Route: 065
     Dates: start: 20220214
  8. FLUCONAZOLE [Concomitant]
     Active Substance: FLUCONAZOLE
     Indication: Neuropathy peripheral
     Dosage: ONE TO BE TAKEN IMMEDIATELY
     Route: 065
     Dates: start: 20220221
  9. FLUOXETINE [Concomitant]
     Active Substance: FLUOXETINE HYDROCHLORIDE
     Indication: Depression
     Dosage: ONE TO BE TAKEN EACH DAY
     Route: 065
     Dates: start: 20220117
  10. GABAPENTIN [Concomitant]
     Active Substance: GABAPENTIN
     Indication: Neuropathy peripheral
     Dosage: TAKE 1, 2 OR 3 AT NIGHT
     Route: 065
     Dates: start: 20220214
  11. NITROFURANTOIN [Concomitant]
     Active Substance: NITROFURANTOIN
     Dosage: ONE TO BE TAKEN TWICE A DAY
     Route: 065
     Dates: start: 20220127, end: 20220225
  12. ONDANSETRON [Concomitant]
     Active Substance: ONDANSETRON
     Indication: Nausea
     Dosage: TAKE 1 TDS PRN FOR NAUSEA
     Route: 065
     Dates: start: 20220228
  13. ONDANSETRON [Concomitant]
     Active Substance: ONDANSETRON
     Indication: Vomiting
  14. PROCHLORPERAZINE [Concomitant]
     Active Substance: PROCHLORPERAZINE
     Dosage: THREE TO BE TAKEN ONCE DAILY
     Route: 065
     Dates: start: 20220228

REACTIONS (5)
  - Tremor [Unknown]
  - Hyperhidrosis [Unknown]
  - Dehydration [Unknown]
  - Vomiting [Unknown]
  - Diarrhoea [Unknown]
